FAERS Safety Report 5541725-4 (Version None)
Quarter: 2007Q4

REPORT INFORMATION
  Report Type: 
  Country: None (occurrence: None)
  Receive Date: 20071210
  Receipt Date: 20071205
  Transmission Date: 20080405
  Serious: Yes (Hospitalization)
  Sender: FDA-Public Use
  Company Number: BE-BRISTOL-MYERS SQUIBB COMPANY-13970918

PATIENT
  Age: 40 Year
  Sex: Female

DRUGS (3)
  1. DASATINIB [Suspect]
     Indication: BREAST CANCER
     Route: 048
     Dates: start: 20070928, end: 20071103
  2. METFORMAX [Concomitant]
  3. L-THYROXINE [Concomitant]

REACTIONS (1)
  - PULMONARY EMBOLISM [None]
